FAERS Safety Report 8451945-7 (Version None)
Quarter: 2012Q2

REPORT INFORMATION
  Report Type: 
  Country: None (occurrence: None)
  Receive Date: 20120620
  Receipt Date: 20120510
  Transmission Date: 20120825
  Serious: No
  Sender: FDA-Public Use
  Company Number: US-VERTEX PHARMACEUTICALS INC.-AE-2012-004330

PATIENT
  Sex: Female
  Weight: 72.186 kg

DRUGS (11)
  1. ATARAX [Concomitant]
  2. CALCIUM [Concomitant]
  3. RIBAVIRIN [Concomitant]
     Indication: HEPATITIS C
     Dates: start: 20120324
  4. COD LIVER OIL [Concomitant]
  5. BIOTIN [Concomitant]
  6. VITAMIN D [Concomitant]
  7. ZYRTEC [Concomitant]
  8. PEGASYS [Concomitant]
     Indication: HEPATITIS C
     Route: 058
     Dates: start: 20120324
  9. VITAMIN E [Concomitant]
  10. INCIVEK [Suspect]
     Indication: HEPATITIS C
     Route: 048
     Dates: start: 20120324
  11. MULTI-VITAMIN [Concomitant]

REACTIONS (11)
  - INCORRECT DOSE ADMINISTERED [None]
  - RASH PRURITIC [None]
  - ARTHRALGIA [None]
  - FATIGUE [None]
  - VOMITING [None]
  - ASTHENIA [None]
  - DYSGEUSIA [None]
  - HEADACHE [None]
  - FLATULENCE [None]
  - WHITE BLOOD CELL COUNT DECREASED [None]
  - INSOMNIA [None]
